FAERS Safety Report 20104504 (Version 2)
Quarter: 2021Q4

REPORT INFORMATION
  Report Type: Spontaneous
  Country: BR (occurrence: BR)
  Receive Date: 20211123
  Receipt Date: 20211210
  Transmission Date: 20220303
  Serious: Yes (Hospitalization)
  Sender: FDA-Public Use
  Company Number: BR-BIOMARINAP-BR-2021-139770

PATIENT
  Age: 16 Year
  Sex: Male
  Weight: 58.4 kg

DRUGS (1)
  1. NAGLAZYME [Suspect]
     Active Substance: GALSULFASE
     Indication: Mucopolysaccharidosis VI
     Dosage: UNK, QW
     Route: 042
     Dates: start: 200512

REACTIONS (6)
  - Deafness bilateral [Recovered/Resolved]
  - Sleep apnoea syndrome [Recovered/Resolved]
  - Respiratory disorder [Unknown]
  - Gingival hypertrophy [Recovered/Resolved]
  - Dysphagia [Unknown]
  - Mastication disorder [Unknown]

NARRATIVE: CASE EVENT DATE: 20120101
